FAERS Safety Report 6887686-7 (Version None)
Quarter: 2010Q3

REPORT INFORMATION
  Report Type: 
  Country: None (occurrence: None)
  Receive Date: 20100728
  Receipt Date: 20100624
  Transmission Date: 20110219
  Serious: Yes (Other)
  Sender: FDA-Public Use
  Company Number: IT-2010-1489

PATIENT
  Age: 39 Year
  Sex: Male

DRUGS (2)
  1. NAVELBINE [Suspect]
     Dosage: 45 MG IV
     Route: 042
     Dates: start: 20091023, end: 20091023
  2. TAXOTERE [Suspect]
     Indication: PRODUCT USED FOR UNKNOWN INDICATION
     Dosage: 130 MG IV
     Route: 042
     Dates: start: 20091023, end: 20091023

REACTIONS (1)
  - DERMATITIS ACNEIFORM [None]
